FAERS Safety Report 13713631 (Version 1)
Quarter: 2017Q3

REPORT INFORMATION
  Report Type: Spontaneous
  Country: GB (occurrence: GB)
  Receive Date: 20170704
  Receipt Date: 20170704
  Transmission Date: 20171127
  Serious: Yes (Hospitalization)
  Sender: FDA-Public Use
  Company Number: GB-ACCORD-053116

PATIENT
  Age: 16 Year
  Sex: Female

DRUGS (8)
  1. SERTRALINE [Suspect]
     Active Substance: SERTRALINE HYDROCHLORIDE
     Indication: DEPRESSION
     Dosage: ALSO RECEIVED 50 MG (02-JUN-2017 TO 07-JUN-2017) AND 75 MG ONCE DAILY (08-JUN-2017 TO 13-JUN-2017)
     Route: 048
     Dates: start: 20170530, end: 20170601
  2. CODEINE [Concomitant]
     Active Substance: CODEINE
  3. LORAZEPAM. [Concomitant]
     Active Substance: LORAZEPAM
  4. PROCYCLIDINE [Concomitant]
     Active Substance: PROCYCLIDINE
  5. SERTRALINE [Suspect]
     Active Substance: SERTRALINE HYDROCHLORIDE
     Indication: DEPRESSION
     Dosage: MORNING.
     Route: 048
     Dates: start: 20170608, end: 20170613
  6. SERTRALINE [Suspect]
     Active Substance: SERTRALINE HYDROCHLORIDE
     Indication: DEPRESSION
     Route: 048
     Dates: start: 20170602, end: 20170607
  7. PARACETAMOL [Concomitant]
     Active Substance: ACETAMINOPHEN
  8. QUETIAPINE. [Suspect]
     Active Substance: QUETIAPINE
     Indication: DEPRESSION
     Dosage: MORNING
     Route: 048
     Dates: end: 20170613

REACTIONS (1)
  - Serotonin syndrome [Recovered/Resolved]

NARRATIVE: CASE EVENT DATE: 20170610
